FAERS Safety Report 12495728 (Version 1)
Quarter: 2016Q2

REPORT INFORMATION
  Report Type: Spontaneous
  Country: US (occurrence: US)
  Receive Date: 20160624
  Receipt Date: 20160624
  Transmission Date: 20160815
  Serious: Yes (Death, Hospitalization)
  Sender: FDA-Public Use
  Company Number: US-TARO PHARMACEUTICALS USA.,INC-2016SUN00335

PATIENT
  Age: 57 Year
  Sex: Female

DRUGS (4)
  1. VITAMIN K [Concomitant]
     Active Substance: PHYTONADIONE
     Indication: INTERNATIONAL NORMALISED RATIO ABNORMAL
     Route: 048
  2. HEPARIN [Concomitant]
     Active Substance: HEPARIN SODIUM
  3. WARFARIN [Suspect]
     Active Substance: WARFARIN
     Indication: MITRAL VALVE REPLACEMENT
     Dosage: UNK
     Route: 065
  4. LEVOFLOXACIN. [Concomitant]
     Active Substance: LEVOFLOXACIN
     Indication: STENOTROPHOMONAS INFECTION

REACTIONS (3)
  - International normalised ratio increased [Unknown]
  - Calciphylaxis [Fatal]
  - Sepsis [Fatal]
